FAERS Safety Report 15158554 (Version 4)
Quarter: 2019Q1

REPORT INFORMATION
  Report Type: Spontaneous
  Country: FR (occurrence: FR)
  Receive Date: 20180718
  Receipt Date: 20190314
  Transmission Date: 20190417
  Serious: Yes (Death, Hospitalization, Other)
  Sender: FDA-Public Use
  Company Number: FR-PFIZER INC-2018287514

PATIENT
  Age: 71 Year
  Sex: Male
  Weight: 91 kg

DRUGS (28)
  1. CORDARONE [Suspect]
     Active Substance: AMIODARONE HYDROCHLORIDE
     Dosage: 200 MG, DAILY
     Route: 065
     Dates: start: 201512
  2. AMIODARONE [Concomitant]
     Active Substance: AMIODARONE
     Dosage: UNK (200)
     Dates: start: 20151224
  3. AMIODARONE HCL [Concomitant]
     Active Substance: AMIODARONE HYDROCHLORIDE
     Dosage: 1 DF, DAILY
     Dates: start: 201512
  4. ALPRAZOLAM. [Concomitant]
     Active Substance: ALPRAZOLAM
     Dosage: UNK
     Dates: start: 20151224
  5. ZOLPIDEM [Concomitant]
     Active Substance: ZOLPIDEM\ZOLPIDEM TARTRATE
     Indication: CARDIOVASCULAR DISORDER
     Dosage: 10 MG, UNK
     Dates: start: 20151224
  6. ATORVASTATINE [ATORVASTATIN] [Concomitant]
     Active Substance: ATORVASTATIN
     Dosage: UNK
     Dates: start: 20170603
  7. FLECAINE LP [Concomitant]
     Active Substance: FLECAINIDE
     Dosage: UNK
     Dates: start: 201504
  8. NIFLUGEL [Concomitant]
     Active Substance: NIFLUMIC ACID
     Dosage: UNK
     Dates: start: 20170603
  9. CYCLO 3 [MELILOTUS OFFICINALIS;RUSCUS ACULEATUS] [Concomitant]
     Dosage: UNK
     Dates: start: 20170603
  10. SIMVASTATINE [Concomitant]
     Active Substance: SIMVASTATIN
     Dosage: 20 MG, UNK
     Dates: start: 20110909, end: 20140930
  11. DOLIPRANE [Concomitant]
     Active Substance: ACETAMINOPHEN
     Dosage: 500 MG, UNK
     Dates: start: 20140929
  12. LANSOPRAZOLE. [Concomitant]
     Active Substance: LANSOPRAZOLE
     Dosage: UNK
  13. CORDARONE [Suspect]
     Active Substance: AMIODARONE HYDROCHLORIDE
     Dosage: 200 MG, UNK
     Route: 065
     Dates: start: 20141004
  14. TAHOR [Concomitant]
     Active Substance: ATORVASTATIN CALCIUM
     Dosage: 40 MG, UNK
     Dates: start: 20140929
  15. KARDEGIC [Concomitant]
     Active Substance: ASPIRIN DL-LYSINE
     Dosage: 75 UG, UNK
     Dates: start: 20110909
  16. PLAVIX [Concomitant]
     Active Substance: CLOPIDOGREL BISULFATE
     Dosage: 75 MG, UNK
     Dates: start: 20151224
  17. PERINDOPRIL [Concomitant]
     Active Substance: PERINDOPRIL
     Dosage: 4 MG, UNK
     Dates: start: 20170603
  18. BISOPROLOL [Concomitant]
     Active Substance: BISOPROLOL
     Dosage: 5 MG, UNK
     Dates: start: 20151224
  19. BISOPROLOL [Concomitant]
     Active Substance: BISOPROLOL
     Dosage: 1.25 MG, UNK
     Dates: start: 201604
  20. ZOPICLONE [Concomitant]
     Active Substance: ZOPICLONE
     Dosage: UNK
     Dates: start: 201512
  21. DESLORATADINE. [Concomitant]
     Active Substance: DESLORATADINE
     Dosage: UNK
     Dates: start: 20170603
  22. CORDARONE [Suspect]
     Active Substance: AMIODARONE HYDROCHLORIDE
     Dosage: UNK
     Route: 065
     Dates: start: 200903
  23. STILNOX [Concomitant]
     Active Substance: ZOLPIDEM TARTRATE
     Dosage: 10 MG, UNK
     Dates: start: 20140929
  24. CORDARONE [Suspect]
     Active Substance: AMIODARONE HYDROCHLORIDE
     Dosage: 400 MG, UNK
     Route: 065
     Dates: start: 20140929, end: 20141004
  25. CORDARONE [Suspect]
     Active Substance: AMIODARONE HYDROCHLORIDE
     Dosage: UNK
     Route: 065
     Dates: start: 20170603, end: 201707
  26. ELIQUIS [Concomitant]
     Active Substance: APIXABAN
     Dosage: UNK
     Dates: start: 20140929
  27. PANTOPRAZOLE [Concomitant]
     Active Substance: PANTOPRAZOLE
     Indication: CARDIOVASCULAR DISORDER
     Dosage: 40 MG, UNK
     Dates: start: 20140929
  28. LERCAN [Concomitant]
     Active Substance: LERCANIDIPINE
     Dosage: 10 MG, UNK
     Dates: start: 20151224

REACTIONS (16)
  - Diarrhoea [Fatal]
  - Interstitial lung disease [Fatal]
  - Blood creatinine increased [Fatal]
  - Renal failure [Fatal]
  - Tachycardia [Fatal]
  - Gait disturbance [Fatal]
  - Dyspnoea [Fatal]
  - Malaise [Fatal]
  - Acute respiratory failure [Fatal]
  - Cerebrovascular accident [Fatal]
  - Chest discomfort [Fatal]
  - Fatigue [Fatal]
  - Acute respiratory distress syndrome [Fatal]
  - Hyperleukocytosis [Fatal]
  - Interstitial lung disease [Fatal]
  - Anaemia [Fatal]

NARRATIVE: CASE EVENT DATE: 2014
